FAERS Safety Report 15288518 (Version 1)
Quarter: 2018Q3

REPORT INFORMATION
  Report Type: Spontaneous
  Country: US (occurrence: US)
  Receive Date: 20180817
  Receipt Date: 20180817
  Transmission Date: 20181010
  Serious: Yes (Hospitalization)
  Sender: FDA-Public Use
  Company Number: US-STRIDES ARCOLAB LIMITED-2018SP005113

PATIENT

DRUGS (3)
  1. GANCICLOVIR. [Concomitant]
     Active Substance: GANCICLOVIR
     Indication: PRODUCT USED FOR UNKNOWN INDICATION
     Dosage: UNKNOWN
     Route: 065
  2. TACROLIMUS. [Suspect]
     Active Substance: TACROLIMUS
     Indication: SQUAMOUS CELL CARCINOMA OF SKIN
     Dosage: UNKNOWN
     Route: 065
  3. VALGANCICLOVIR. [Concomitant]
     Active Substance: VALGANCICLOVIR
     Indication: PROPHYLAXIS
     Dosage: UNKNOWN
     Route: 065

REACTIONS (10)
  - Tachycardia [Recovered/Resolved]
  - Wheezing [Recovered/Resolved]
  - Dyspnoea [Recovered/Resolved]
  - Tachypnoea [Recovered/Resolved]
  - Jugular vein distension [Recovered/Resolved]
  - Hypoxia [Recovered/Resolved]
  - Cough [Recovered/Resolved]
  - Cytomegalovirus myocarditis [Recovered/Resolved]
  - Fatigue [Recovered/Resolved]
  - Off label use [Unknown]
